FAERS Safety Report 9534693 (Version 1)
Quarter: 2013Q3

REPORT INFORMATION
  Report Type: Spontaneous
  Country: US (occurrence: US)
  Receive Date: 20130918
  Receipt Date: 20130918
  Transmission Date: 20140515
  Serious: No
  Sender: FDA-Public Use
  Company Number: US-PFIZER INC-2013267705

PATIENT
  Sex: Female

DRUGS (4)
  1. DEPO-PROVERA [Suspect]
     Indication: MENSTRUAL DISCOMFORT
     Dosage: 250 MG, EVERY 3 MONTHS
     Route: 042
     Dates: start: 201210
  2. FELBATOL [Concomitant]
     Indication: CONVULSION
     Dosage: UNK
  3. VIMPAT [Concomitant]
     Indication: CONVULSION
     Dosage: UNK
  4. LAMICTAL [Concomitant]
     Indication: CONVULSION
     Dosage: UNK

REACTIONS (2)
  - Drug ineffective for unapproved indication [Unknown]
  - Incorrect route of drug administration [Unknown]
